FAERS Safety Report 6126812-4 (Version None)
Quarter: 2009Q1

REPORT INFORMATION
  Report Type: 
  Country: None (occurrence: None)
  Receive Date: 20090320
  Receipt Date: 20090225
  Transmission Date: 20090719
  Serious: Yes (Other)
  Sender: FDA-Public Use
  Company Number: PHEH2009US02822

PATIENT
  Sex: Male

DRUGS (1)
  1. RECLAST [Suspect]
     Indication: OSTEOPOROSIS
     Dosage: 5 MG, 30 MIN.
     Route: 042
     Dates: start: 20090209, end: 20090209

REACTIONS (2)
  - INSOMNIA [None]
  - LOSS OF CONSCIOUSNESS [None]
